FAERS Safety Report 9418044 (Version 1)
Quarter: 2013Q3

REPORT INFORMATION
  Report Type: Spontaneous
  Country: US (occurrence: US)
  Receive Date: 20130724
  Receipt Date: 20130724
  Transmission Date: 20140515
  Serious: No
  Sender: FDA-Public Use
  Company Number: US-BAUSCH-2012BL004087

PATIENT
  Sex: Female

DRUGS (1)
  1. OPCON-A [Suspect]
     Indication: EYE ALLERGY
     Dosage: DOSE: OPHTHALMIC
     Route: 047

REACTIONS (2)
  - Eye pain [Unknown]
  - Eye irritation [Unknown]
